FAERS Safety Report 7265505-7 (Version None)
Quarter: 2011Q1

REPORT INFORMATION
  Report Type: 
  Country: None (occurrence: None)
  Receive Date: 20110131
  Receipt Date: 20110124
  Transmission Date: 20110831
  Serious: Yes (Death)
  Sender: FDA-Public Use
  Company Number: FR-ROCHE-755475

PATIENT
  Sex: Male

DRUGS (1)
  1. BEVACIZUMAB [Suspect]
     Route: 065
     Dates: start: 20101013, end: 20101224

REACTIONS (2)
  - BRAIN HERNIATION [None]
  - SUBDURAL HAEMATOMA [None]
